FAERS Safety Report 9847842 (Version 2)
Quarter: 2014Q1

REPORT INFORMATION
  Report Type: Spontaneous
  Country: US (occurrence: US)
  Receive Date: 20140128
  Receipt Date: 20140316
  Transmission Date: 20141002
  Serious: Yes (Other)
  Sender: FDA-Public Use
  Company Number: US-BRISTOL-MYERS SQUIBB COMPANY-20059911

PATIENT
  Age: 47 Year
  Sex: Male

DRUGS (1)
  1. ABILIFY [Suspect]
     Indication: ABNORMAL BEHAVIOUR
     Dosage: 40MG

REACTIONS (4)
  - Psychiatric decompensation [Unknown]
  - Off label use [Unknown]
  - Overdose [Unknown]
  - Hallucination, tactile [Unknown]
